FAERS Safety Report 22601050 (Version 1)
Quarter: 2023Q2

REPORT INFORMATION
  Report Type: Spontaneous
  Country: CN (occurrence: CN)
  Receive Date: 20230614
  Receipt Date: 20230614
  Transmission Date: 20230721
  Serious: Yes (Other)
  Sender: FDA-Public Use
  Company Number: CN-PFIZER INC-PV202300103424

PATIENT
  Age: 9 Year
  Sex: Female
  Weight: 29.2 kg

DRUGS (2)
  1. AZITHROMYCIN [Suspect]
     Active Substance: AZITHROMYCIN
     Indication: Anti-infective therapy
     Dosage: 0.29 G, 1X/DAY
     Route: 041
     Dates: start: 20230607, end: 20230607
  2. AZITHROMYCIN [Suspect]
     Active Substance: AZITHROMYCIN
     Indication: Mycoplasma infection

REACTIONS (6)
  - Rash [Recovering/Resolving]
  - Urticaria [Recovering/Resolving]
  - Pruritus [Recovering/Resolving]
  - Lip swelling [Recovering/Resolving]
  - Mouth swelling [Recovering/Resolving]
  - Off label use [Unknown]

NARRATIVE: CASE EVENT DATE: 20230607
